FAERS Safety Report 6874986-X (Version None)
Quarter: 2010Q3

REPORT INFORMATION
  Report Type: 
  Country: None (occurrence: None)
  Receive Date: 20100723
  Receipt Date: 20100718
  Transmission Date: 20110219
  Serious: Yes (Hospitalization, Other)
  Sender: FDA-Public Use
  Company Number: 014960

PATIENT
  Sex: Female
  Weight: 100 kg

DRUGS (9)
  1. CERTOLIZUMAB PEGOL (CERTOLIZUMAB PEGOL) [Suspect]
     Indication: RHEUMATOID ARTHRITIS
     Dosage: SEE IMAGE
     Route: 058
     Dates: start: 20051226, end: 20060612
  2. CERTOLIZUMAB PEGOL (CERTOLIZUMAB PEGOL) [Suspect]
     Indication: RHEUMATOID ARTHRITIS
     Dosage: SEE IMAGE
     Route: 058
     Dates: start: 20060612, end: 20071030
  3. CERTOLIZUMAB PEGOL (CERTOLIZUMAB PEGOL) [Suspect]
     Indication: RHEUMATOID ARTHRITIS
     Dosage: SEE IMAGE
     Route: 058
     Dates: start: 20071113, end: 20100623
  4. METHOTREXATE [Concomitant]
  5. FOLIC ACID [Concomitant]
  6. METFORMIN HCL [Concomitant]
  7. LANTUS [Concomitant]
  8. OMEPRAZOLE [Concomitant]
  9. BROTIZOLAM [Concomitant]

REACTIONS (11)
  - BACK PAIN [None]
  - CHILLS [None]
  - DIABETES MELLITUS [None]
  - KIDNEY FIBROSIS [None]
  - KLEBSIELLA INFECTION [None]
  - LYMPHOMA [None]
  - MONOCYTE COUNT INCREASED [None]
  - NEPHROTIC SYNDROME [None]
  - PAIN [None]
  - SLEEP DISORDER [None]
  - SPONDYLOLISTHESIS [None]
